APPROVED DRUG PRODUCT: ADVIL
Active Ingredient: IBUPROFEN SODIUM
Strength: EQ 200MG BASE
Dosage Form/Route: TABLET;ORAL
Application: N201803 | Product #001
Applicant: HALEON US HOLDINGS LLC
Approved: Jun 12, 2012 | RLD: Yes | RS: Yes | Type: OTC